FAERS Safety Report 7516312-9 (Version None)
Quarter: 2011Q2

REPORT INFORMATION
  Report Type: 
  Country: None (occurrence: None)
  Receive Date: 20110601
  Receipt Date: 20110523
  Transmission Date: 20111010
  Serious: Yes (Hospitalization)
  Sender: FDA-Public Use
  Company Number: US-ASTRAZENECA-2011SE31668

PATIENT
  Age: 48 Year
  Sex: Female
  Weight: 56.7 kg

DRUGS (6)
  1. SEROQUEL [Suspect]
     Route: 048
     Dates: end: 20110520
  2. SEROQUEL [Suspect]
     Route: 048
     Dates: end: 20110520
  3. SEROQUEL [Suspect]
     Indication: DEPRESSION
     Route: 048
  4. ATIVAN [Concomitant]
  5. SEROQUEL [Suspect]
     Indication: SLEEP DISORDER
     Route: 048
  6. LISINOPRIL [Concomitant]

REACTIONS (6)
  - DRUG DOSE OMISSION [None]
  - RENAL HAEMORRHAGE [None]
  - INSOMNIA [None]
  - JOINT SPRAIN [None]
  - FALL [None]
  - WEIGHT DECREASED [None]
